FAERS Safety Report 14099646 (Version 1)
Quarter: 2017Q4

REPORT INFORMATION
  Report Type: Spontaneous
  Country: US (occurrence: US)
  Receive Date: 20171017
  Receipt Date: 20171017
  Transmission Date: 20180321
  Serious: Yes (Hospitalization)
  Sender: FDA-Public Use
  Company Number: US-AMNEAL PHARMACEUTICALS-2017AMN00694

PATIENT
  Sex: Male

DRUGS (3)
  1. PF-06290510/PLACEBO [Concomitant]
     Indication: IMMUNISATION
     Dosage: UNK
     Dates: start: 20170523, end: 20170523
  2. HYDROCODONE AND ACETAMINOPHEN [Suspect]
     Active Substance: ACETAMINOPHEN\HYDROCODONE
     Indication: PROCEDURAL PAIN
     Dosage: UNK
     Dates: start: 20170602
  3. HYDROMORPHONE HYDROCLORIDE [Concomitant]
     Indication: PROCEDURAL PAIN
     Dosage: UNK
     Dates: start: 20170601, end: 20170602

REACTIONS (1)
  - Urinary retention postoperative [Recovered/Resolved]
